FAERS Safety Report 21397951 (Version 1)
Quarter: 2022Q3

REPORT INFORMATION
  Report Type: 
  Country: IT (occurrence: IT)
  Receive Date: 20220930
  Receipt Date: 20220930
  Transmission Date: 20221027
  Serious: Yes (Life-Threatening)
  Sender: FDA-Public Use
  Company Number: IT-Stemline Therapeutics, Inc.-2022ST000184

PATIENT
  Age: 72 Year
  Sex: Male
  Weight: 85 kg

DRUGS (1)
  1. ELZONRIS [Suspect]
     Active Substance: TAGRAXOFUSP-ERZS
     Indication: Leukaemia
     Route: 042
     Dates: start: 20211220, end: 20211226

REACTIONS (8)
  - Respiratory failure [Not Recovered/Not Resolved]
  - Haematuria [Not Recovered/Not Resolved]
  - Resuscitation [Not Recovered/Not Resolved]
  - Abdominal wall haematoma [Not Recovered/Not Resolved]
  - Acute kidney injury [Not Recovered/Not Resolved]
  - Coagulopathy [Not Recovered/Not Resolved]
  - Anuria [Not Recovered/Not Resolved]
  - Renal haematoma [Not Recovered/Not Resolved]

NARRATIVE: CASE EVENT DATE: 20211226
